FAERS Safety Report 22218281 (Version 2)
Quarter: 2023Q2

REPORT INFORMATION
  Report Type: Spontaneous
  Country: US (occurrence: US)
  Receive Date: 20230417
  Receipt Date: 20230531
  Transmission Date: 20230721
  Serious: No
  Sender: FDA-Public Use
  Company Number: US-PFIZER INC-PV202300064136

PATIENT
  Age: 58 Year
  Sex: Male

DRUGS (2)
  1. GENOTROPIN [Suspect]
     Active Substance: SOMATROPIN
     Dosage: 6 MG, ALTERNATE DAY (4.0MG ALTERNATING 6.0MG EVERY OTHER DAY)
  2. GENOTROPIN [Suspect]
     Active Substance: SOMATROPIN
     Dosage: 4 MG, ALTERNATE DAY (4.0MG ALTERNATING 6.0MG EVERY OTHER DAY)

REACTIONS (1)
  - Device breakage [Unknown]
